FAERS Safety Report 9152945 (Version 2)
Quarter: 2013Q2

REPORT INFORMATION
  Report Type: Spontaneous
  Country: RO (occurrence: RO)
  Receive Date: 20130206
  Receipt Date: 20130407
  Transmission Date: 20140414
  Serious: Yes (Life-Threatening)
  Sender: FDA-Public Use
  Company Number: RO-BRACCO-000016

PATIENT
  Age: 27 Year
  Sex: Male

DRUGS (1)
  1. MULTIHANCE [Suspect]
     Indication: MALFORMATION VENOUS
     Dosage: 15 ML SINGLE DOSE
     Route: 042

REACTIONS (7)
  - Nausea [Unknown]
  - Vomiting [Unknown]
  - Headache [Unknown]
  - Pallor [Unknown]
  - Hyperhidrosis [Unknown]
  - Tachycardia [Unknown]
  - Loss of consciousness [Unknown]
